FAERS Safety Report 20850809 (Version 1)
Quarter: 2022Q2

REPORT INFORMATION
  Report Type: Spontaneous
  Country: BR (occurrence: BR)
  Receive Date: 20220519
  Receipt Date: 20220519
  Transmission Date: 20220721
  Serious: Yes (Other)
  Sender: FDA-Public Use
  Company Number: BR-PFIZER INC-202200720694

PATIENT
  Sex: Female

DRUGS (2)
  1. GABAPENTIN [Suspect]
     Active Substance: GABAPENTIN
     Indication: Neck pain
     Dosage: UNK
     Dates: start: 202111
  2. GABAPENTIN [Suspect]
     Active Substance: GABAPENTIN
     Indication: Fibromyalgia

REACTIONS (10)
  - Myocardial infarction [Unknown]
  - Off label use [Unknown]
  - Feeling abnormal [Unknown]
  - Malaise [Unknown]
  - Blood pressure decreased [Unknown]
  - Dizziness [Unknown]
  - Palpitations [Unknown]
  - Chest pain [Unknown]
  - Heart rate [Unknown]
  - Cold sweat [Unknown]
